FAERS Safety Report 7033813-0 (Version None)
Quarter: 2010Q4

REPORT INFORMATION
  Report Type: 
  Country: None (occurrence: None)
  Receive Date: 20101007
  Receipt Date: 20100929
  Transmission Date: 20110411
  Serious: Yes (Hospitalization)
  Sender: FDA-Public Use
  Company Number: US-ABBOTT-10P-163-0648581-00

PATIENT
  Sex: Female
  Weight: 169.8 kg

DRUGS (4)
  1. HUMIRA [Suspect]
     Indication: PSORIASIS
     Route: 058
     Dates: start: 20100322
  2. HUMIRA [Concomitant]
     Route: 058
     Dates: start: 20091105
  3. HUMIRA [Concomitant]
     Route: 058
     Dates: start: 20091205
  4. METHOTREXATE [Concomitant]
     Indication: PSORIASIS
     Dates: start: 20100528, end: 20100531

REACTIONS (1)
  - DERMATITIS EXFOLIATIVE [None]
